FAERS Safety Report 9391589 (Version 1)
Quarter: 2013Q3

REPORT INFORMATION
  Report Type: Spontaneous
  Country: US (occurrence: US)
  Receive Date: 20130709
  Receipt Date: 20130709
  Transmission Date: 20140515
  Serious: Yes (Hospitalization)
  Sender: FDA-Public Use
  Company Number: US-GLAXOSMITHKLINE-A0793370A

PATIENT
  Age: 61 Year
  Sex: Male
  Weight: 102.3 kg

DRUGS (1)
  1. AVANDIA [Suspect]
     Indication: DIABETES MELLITUS
     Dosage: 8MG TWICE PER DAY
     Route: 048
     Dates: start: 20001201, end: 200705

REACTIONS (4)
  - Acute myocardial infarction [Unknown]
  - Cardiac failure congestive [Unknown]
  - Angina unstable [Unknown]
  - Transient ischaemic attack [Unknown]
